FAERS Safety Report 11644541 (Version 1)
Quarter: 2015Q4

REPORT INFORMATION
  Report Type: Spontaneous
  Country: KR (occurrence: KR)
  Receive Date: 20151020
  Receipt Date: 20151020
  Transmission Date: 20160304
  Serious: Yes (Hospitalization, Other)
  Sender: FDA-Public Use
  Company Number: KR-BAYER-2015-440781

PATIENT
  Age: 32 Year
  Sex: Female

DRUGS (5)
  1. ESTROGEN [Suspect]
     Active Substance: ESTRONE\SUS SCROFA OVARY
     Indication: ORAL CONTRACEPTION
     Dosage: 1.25 MG, QD
  2. DYDROGESTERONE [Suspect]
     Active Substance: DYDROGESTERONE
     Indication: IN VITRO FERTILISATION
  3. DYDROGESTERONE [Suspect]
     Active Substance: DYDROGESTERONE
     Indication: ORAL CONTRACEPTION
     Dosage: 10 MG, QD
  4. DROSPIRENONE + ETHINYLESTRADIOL 30?G [Suspect]
     Active Substance: DROSPIRENONE\ETHINYL ESTRADIOL
     Indication: POLYCYSTIC OVARIES
     Dosage: EE 0.03MG, DROSPIRENONE 3MG
  5. ESTROGEN [Suspect]
     Active Substance: ESTRONE\SUS SCROFA OVARY
     Indication: IN VITRO FERTILISATION
     Dosage: 1.25 MG, UNK

REACTIONS (2)
  - Polyarteritis nodosa [None]
  - Haemorrhage [None]
